FAERS Safety Report 5103441-2 (Version None)
Quarter: 2006Q3

REPORT INFORMATION
  Report Type: 
  Country: None (occurrence: None)
  Receive Date: 20060913
  Receipt Date: 20060905
  Transmission Date: 20061208
  Serious: Yes (Hospitalization)
  Sender: FDA-Public Use
  Company Number: 2006CG01458

PATIENT
  Age: 81 Year
  Sex: Female

DRUGS (10)
  1. NEXIUM [Suspect]
     Route: 048
     Dates: end: 20060728
  2. MINISINTROM [Interacting]
     Route: 048
     Dates: end: 20060728
  3. ALPRESS [Concomitant]
  4. TRIATEC [Concomitant]
  5. LEVOTHYROXINE SODIUM [Concomitant]
  6. NOVONORM [Concomitant]
  7. LASILIX [Concomitant]
  8. HYDREA [Concomitant]
  9. PRAVASTATIN [Concomitant]
  10. ALDACTONE [Concomitant]

REACTIONS (5)
  - COAGULOPATHY [None]
  - DRUG INTERACTION [None]
  - GASTRIC ULCER [None]
  - HAEMATEMESIS [None]
  - VOMITING [None]
